FAERS Safety Report 7489616-6 (Version None)
Quarter: 2011Q2

REPORT INFORMATION
  Report Type: 
  Country: None (occurrence: None)
  Receive Date: 20110519
  Receipt Date: 20110510
  Transmission Date: 20111010
  Serious: No
  Sender: FDA-Public Use
  Company Number: US-BIOGENIDEC-2010BI017415

PATIENT
  Age: 56 Year
  Sex: Female

DRUGS (2)
  1. TYSABRI [Suspect]
     Indication: MULTIPLE SCLEROSIS
     Route: 042
     Dates: start: 20070925, end: 20100401
  2. TYSABRI [Suspect]
     Route: 042

REACTIONS (10)
  - COORDINATION ABNORMAL [None]
  - ASTHENIA [None]
  - MOBILITY DECREASED [None]
  - FALL [None]
  - DRUG INEFFECTIVE [None]
  - URTICARIA [None]
  - NOCTURIA [None]
  - FATIGUE [None]
  - PSORIASIS [None]
  - GAIT DISTURBANCE [None]
